FAERS Safety Report 12655093 (Version 1)
Quarter: 2016Q3

REPORT INFORMATION
  Report Type: Spontaneous
  Country: US (occurrence: None)
  Receive Date: 20160815
  Receipt Date: 20160815
  Transmission Date: 20161109
  Serious: Yes (Hospitalization)
  Sender: FDA-Public Use
  Company Number: None

PATIENT
  Age: 42 Year
  Sex: Female

DRUGS (15)
  1. LITHIUM. [Concomitant]
     Active Substance: LITHIUM
  2. FENOFIBRATE. [Concomitant]
     Active Substance: FENOFIBRATE
  3. LORATADINE. [Concomitant]
     Active Substance: LORATADINE
  4. SILYMARIN [Concomitant]
     Active Substance: MILK THISTLE
  5. SOVALDI [Suspect]
     Active Substance: SOFOSBUVIR
     Indication: HEPATITIS C
     Route: 048
  6. DULOXETINE. [Concomitant]
     Active Substance: DULOXETINE
  7. OXYCODONE [Concomitant]
     Active Substance: OXYCODONE
  8. GABAPENTIN. [Concomitant]
     Active Substance: GABAPENTIN
  9. SINGULAIR [Concomitant]
     Active Substance: MONTELUKAST SODIUM
  10. LEVEMIR [Concomitant]
     Active Substance: INSULIN DETEMIR
  11. SYNTHROID [Concomitant]
     Active Substance: LEVOTHYROXINE SODIUM
  12. TRAZODONE [Concomitant]
     Active Substance: TRAZODONE HYDROCHLORIDE
  13. RIBASPHERE [Concomitant]
     Active Substance: RIBAVIRIN
  14. ALPRAZOLAM. [Concomitant]
     Active Substance: ALPRAZOLAM
  15. ESOMEPRAZOLE [Concomitant]
     Active Substance: ESOMEPRAZOLE

REACTIONS (2)
  - Constipation [None]
  - Diarrhoea [None]

NARRATIVE: CASE EVENT DATE: 20160812
